FAERS Safety Report 8204710-X (Version None)
Quarter: 2012Q1

REPORT INFORMATION
  Report Type: 
  Country: None (occurrence: None)
  Receive Date: 20120313
  Receipt Date: 20120301
  Transmission Date: 20120608
  Serious: Yes (Hospitalization)
  Sender: FDA-Public Use
  Company Number: DE-BAYER-2012-023647

PATIENT
  Age: 63 Year
  Sex: Female
  Weight: 64.7 kg

DRUGS (8)
  1. SPIRONOLACTONE [Concomitant]
     Indication: ASCITES
     Dosage: 100 MG, QD
     Route: 048
     Dates: start: 20110823
  2. METOCLOPRAMIDE [Concomitant]
     Indication: NAUSEA
     Dosage: UNK UNK, PRN
     Route: 048
     Dates: start: 20110817
  3. TORSEMIDE [Concomitant]
     Indication: ASCITES
     Dosage: UNK UNK, PRN
     Dates: start: 20110823
  4. METOPROLOL TARTRATE AND HYDROCHLOROTHIAZIDE [Concomitant]
  5. SORAFENIB (RAF KINASE INHIBITOR) [Suspect]
     Indication: HEPATIC NEOPLASM MALIGNANT
     Dosage: 400 MG, BID
     Route: 048
     Dates: start: 20110905
  6. LEVOTHYROXINE SODIUM [Concomitant]
     Indication: HYPOTHYROIDISM
     Dosage: TOTAL DAILY DOSE 175 MCG
     Route: 048
     Dates: start: 19900101
  7. NOVALGIN [Concomitant]
     Indication: PAIN
     Dosage: 500 MG, QID
     Route: 048
     Dates: start: 20110720
  8. ACETYLCYSTEINE [Concomitant]
     Indication: COUGH
     Dosage: 600 MG, QD
     Route: 048
     Dates: start: 20110919

REACTIONS (1)
  - ASCITES [None]
